FAERS Safety Report 7746157-6 (Version None)
Quarter: 2011Q3

REPORT INFORMATION
  Report Type: 
  Country: None (occurrence: None)
  Receive Date: 20110913
  Receipt Date: 20110908
  Transmission Date: 20111222
  Serious: Yes (Life-Threatening, Hospitalization)
  Sender: FDA-Public Use
  Company Number: US-ROCHE-782792

PATIENT
  Sex: Female
  Weight: 55.4 kg

DRUGS (5)
  1. DOCETAXEL [Suspect]
     Dosage: OVER 3 HRS ON A DAY
     Route: 042
     Dates: start: 20101208
  2. CISPLATIN [Suspect]
     Dosage: ON DAY 2, TOTAL DOSE ADMINISTERED: 117 MG, LAST ADMINISTERED DATE: 10 FEBRUARY 2011
     Route: 033
     Dates: start: 20101208
  3. PACLITAXEL [Suspect]
     Indication: OVARIAN EPITHELIAL CANCER
     Dosage: PHASE A : OVER 3 HOURS ON DAY 1, TOTAL DOSE ADMINISTERED IN THE COURSE: 304.2 MG.
     Route: 042
     Dates: start: 20100812
  4. CARBOPLATIN [Suspect]
     Dosage: 5 AUC ON DAY 1. LAST DOSE: 19 MARCH 2011
     Route: 042
     Dates: start: 20101208
  5. BEVACIZUMAB [Suspect]
     Dosage: OVER 30-90 MIN ON DAY 1, TOTAL DOSE ADMINISTERED IN COURSE: 831 MG,LAST ADMINI. DATE: 02 FEB 2011
     Route: 042
     Dates: start: 20101208

REACTIONS (19)
  - DEHYDRATION [None]
  - DIARRHOEA [None]
  - BLOOD AMYLASE INCREASED [None]
  - VOMITING [None]
  - LIPASE INCREASED [None]
  - URINARY TRACT INFECTION [None]
  - FATIGUE [None]
  - SYNCOPE [None]
  - HYPOMAGNESAEMIA [None]
  - PANCREATITIS [None]
  - MUSCULAR WEAKNESS [None]
  - BLOOD CALCIUM DECREASED [None]
  - BLOOD POTASSIUM DECREASED [None]
  - WEIGHT DECREASED [None]
  - ASCITES [None]
  - ENTEROCOLITIS INFECTIOUS [None]
  - NAUSEA [None]
  - ABDOMINAL PAIN [None]
  - DECREASED APPETITE [None]
